FAERS Safety Report 16639303 (Version 2)
Quarter: 2019Q3

REPORT INFORMATION
  Report Type: Report from Study
  Country: US (occurrence: US)
  Receive Date: 20190726
  Receipt Date: 20190827
  Transmission Date: 20191004
  Serious: Yes (Hospitalization)
  Sender: FDA-Public Use
  Company Number: US-ACTELION-A-NJ2019-191149

PATIENT
  Age: 39 Year
  Sex: Female

DRUGS (1)
  1. TRACLEER [Suspect]
     Active Substance: BOSENTAN
     Indication: PULMONARY ARTERIAL HYPERTENSION
     Dosage: 125 MG, BID
     Route: 048
     Dates: start: 201412

REACTIONS (11)
  - Pulmonary hypertension [Unknown]
  - Dyspnoea [Recovered/Resolved]
  - Throat irritation [Unknown]
  - Palpitations [Recovering/Resolving]
  - Troponin increased [Unknown]
  - Chest discomfort [Recovering/Resolving]
  - Headache [Recovering/Resolving]
  - Device related infection [Recovered/Resolved]
  - Weight increased [Unknown]
  - Anxiety [Recovering/Resolving]
  - Nausea [Recovering/Resolving]

NARRATIVE: CASE EVENT DATE: 20190428
